FAERS Safety Report 12957382 (Version 6)
Quarter: 2018Q3

REPORT INFORMATION
  Report Type: Spontaneous
  Country: US (occurrence: US)
  Receive Date: 20161118
  Receipt Date: 20180917
  Transmission Date: 20181010
  Serious: Yes (Hospitalization, Other)
  Sender: FDA-Public Use
  Company Number: US-PFIZER INC-2016301073

PATIENT
  Age: 75 Year
  Sex: Female
  Weight: 85.28 kg

DRUGS (26)
  1. VENLAFAXINE [Concomitant]
     Active Substance: VENLAFAXINE HYDROCHLORIDE
     Indication: HYPERTENSION
  2. LOSARTAN POTASSIUM. [Concomitant]
     Active Substance: LOSARTAN POTASSIUM
     Indication: HYPERTENSION
     Dosage: 25 MG, DAILY (50 MG, ONE HALF TABLET PER DAY)
  3. LYRICA [Suspect]
     Active Substance: PREGABALIN
     Dosage: 225 MG, 2X/DAY
  4. LOSARTAN. [Concomitant]
     Active Substance: LOSARTAN
     Indication: BLOOD PRESSURE ABNORMAL
     Dosage: 50 MG, 1X/DAY
     Route: 048
     Dates: start: 2011
  5. CARTIA XT [Concomitant]
     Active Substance: DILTIAZEM HYDROCHLORIDE
     Indication: CARDIAC DISORDER
     Dosage: 120 MG, 1X/DAY
     Route: 048
     Dates: start: 2015
  6. ALLOPURINOL. [Concomitant]
     Active Substance: ALLOPURINOL
     Indication: GOUT
     Dosage: 200 MG, DAILY
     Route: 048
  7. ALENDRONATE SODIUM. [Concomitant]
     Active Substance: ALENDRONATE SODIUM
     Dosage: 70 MG, WEEKLY (ONE TABLET PER WEEK)
  8. LOSARTAN. [Concomitant]
     Active Substance: LOSARTAN
     Indication: HYPERTENSION
  9. LEVOTHYROXINE. [Concomitant]
     Active Substance: LEVOTHYROXINE
     Indication: THYROID DISORDER
     Dosage: 50 UG, 1X/DAY, (EVERY MORNING 1 HOUR BEFORE BREAKFAST)
     Route: 048
     Dates: start: 2015
  10. LYRICA [Suspect]
     Active Substance: PREGABALIN
     Indication: FIBROMYALGIA
     Dosage: 200 MG, UNK
     Route: 048
  11. LYRICA [Suspect]
     Active Substance: PREGABALIN
     Indication: DIABETIC NEUROPATHY
     Dosage: 200 MG, 2X/DAY
     Route: 048
     Dates: start: 2008
  12. AMLODIPINE BESILATE [Concomitant]
     Active Substance: AMLODIPINE BESYLATE
     Dosage: 2.5 MG, DAILY, (5 MG TABLETS CUT IN HALF EVERY DAY)
  13. VENLAFAXINE [Concomitant]
     Active Substance: VENLAFAXINE HYDROCHLORIDE
     Indication: AFFECTIVE DISORDER
     Dosage: 75 MG, 1X/DAY
     Route: 048
  14. BISOPROLOL FUMARATE. [Concomitant]
     Active Substance: BISOPROLOL FUMARATE
     Indication: CARDIAC DISORDER
     Dosage: 2.5 MG, DAILY, (1/2 TABLET)
     Route: 048
     Dates: start: 2012
  15. EZETIMIBE. [Concomitant]
     Active Substance: EZETIMIBE
     Indication: BLOOD CHOLESTEROL ABNORMAL
     Dosage: 10 MG, DAILY
  16. VENTOLIN [Concomitant]
     Active Substance: ALBUTEROL SULFATE
     Indication: CHRONIC OBSTRUCTIVE PULMONARY DISEASE
     Dosage: UNK, DAILY (ONE PUFF PER DAY)
  17. BREO ELLIPTA [Concomitant]
     Active Substance: FLUTICASONE FUROATE\VILANTEROL TRIFENATATE
     Indication: CHRONIC OBSTRUCTIVE PULMONARY DISEASE
     Dosage: UNK, DAILY (ONE PUFF FOR DAY)
  18. FAMOTIDINE. [Concomitant]
     Active Substance: FAMOTIDINE
     Indication: ABDOMINAL DISCOMFORT
  19. WELCHOL [Concomitant]
     Active Substance: COLESEVELAM HYDROCHLORIDE
     Indication: BLOOD CHOLESTEROL ABNORMAL
     Dosage: 3.7 G, DAILY
     Route: 048
     Dates: start: 201603
  20. FISH OIL [Concomitant]
     Active Substance: FISH OIL
     Indication: BLOOD CHOLESTEROL ABNORMAL
     Dosage: 100 MG, DAILY
     Route: 048
     Dates: start: 2014
  21. SPIRIVA [Concomitant]
     Active Substance: TIOTROPIUM BROMIDE MONOHYDRATE
     Indication: CHRONIC OBSTRUCTIVE PULMONARY DISEASE
     Dosage: 18 UG, DAILY (PER DAY)
  22. ALENDRONATE [Concomitant]
     Active Substance: ALENDRONATE SODIUM
     Indication: BONE DISORDER
     Dosage: 70 MG, WEEKLY
     Route: 048
     Dates: start: 2015
  23. ASPIRIN. [Concomitant]
     Active Substance: ASPIRIN
     Indication: CARDIAC DISORDER
     Dosage: 81 MG, 1X/DAY
     Route: 048
     Dates: start: 2006
  24. FENOFIBRATE. [Concomitant]
     Active Substance: FENOFIBRATE
     Indication: CARDIAC DISORDER
     Dosage: 160 MG, DAILY(WITH MEAL)(ONE TABLET PER DAY)
     Route: 048
     Dates: start: 2011
  25. VITAMIN D3 [Concomitant]
     Active Substance: CHOLECALCIFEROL
     Dosage: 2000 IU, DAILY (TWO PER DAY)
  26. FAMOTIDINE. [Concomitant]
     Active Substance: FAMOTIDINE
     Indication: GASTROOESOPHAGEAL REFLUX DISEASE
     Dosage: 20 MG, 1X/DAY, (IN EVENING)
     Route: 048

REACTIONS (14)
  - Weight increased [Not Recovered/Not Resolved]
  - Myocardial infarction [Unknown]
  - Cerebrovascular accident [Unknown]
  - Pain [Unknown]
  - Diabetes mellitus [Unknown]
  - Gout [Recovering/Resolving]
  - Drug effect incomplete [Not Recovered/Not Resolved]
  - Increased appetite [Unknown]
  - Malaise [Unknown]
  - Drug dose omission [Unknown]
  - Diabetic neuropathy [Not Recovered/Not Resolved]
  - Condition aggravated [Not Recovered/Not Resolved]
  - Pneumonia [Recovered/Resolved]
  - Coma [Unknown]

NARRATIVE: CASE EVENT DATE: 201409
